FAERS Safety Report 13071520 (Version 2)
Quarter: 2017Q1

REPORT INFORMATION
  Report Type: Spontaneous
  Country: US (occurrence: US)
  Receive Date: 20161229
  Receipt Date: 20170117
  Transmission Date: 20170428
  Serious: No
  Sender: FDA-Public Use
  Company Number: US-PFIZER INC-2016590320

PATIENT
  Age: 62 Year
  Sex: Male

DRUGS (1)
  1. SILVADENE [Suspect]
     Active Substance: SILVER SULFADIAZINE
     Indication: SKIN ULCER
     Dosage: EACH DAY
     Route: 061

REACTIONS (3)
  - Drug intolerance [Unknown]
  - Pain [Recovered/Resolved]
  - Burning sensation [Recovered/Resolved]
